FAERS Safety Report 6960349-5 (Version None)
Quarter: 2010Q3

REPORT INFORMATION
  Report Type: 
  Country: None (occurrence: None)
  Receive Date: 20100901
  Receipt Date: 20100818
  Transmission Date: 20110219
  Serious: Yes (Hospitalization, Other)
  Sender: FDA-Public Use
  Company Number: TN-PAR PHARMACEUTICAL, INC-2010SCPR002030

PATIENT

DRUGS (3)
  1. IBUPROFEN [Suspect]
     Indication: PYREXIA
     Dosage: 7.5 MG/KG, UNKNOWN
     Route: 065
  2. IBUPROFEN [Suspect]
     Indication: COUGH
  3. IBUPROFEN [Suspect]
     Indication: RHINORRHOEA

REACTIONS (1)
  - METHAEMOGLOBINAEMIA [None]
